FAERS Safety Report 6337208-4 (Version None)
Quarter: 2009Q3

REPORT INFORMATION
  Report Type: 
  Country: None (occurrence: None)
  Receive Date: 20090902
  Receipt Date: 20090827
  Transmission Date: 20100115
  Serious: Yes (Other)
  Sender: FDA-Public Use
  Company Number: US-RB-019997-09

PATIENT
  Age: 29 Year
  Sex: Male

DRUGS (1)
  1. SUBOXONE [Suspect]
     Dosage: DOSING INFORMATION UNKNOWN.
     Route: 065
     Dates: start: 20090401

REACTIONS (3)
  - HOMICIDAL IDEATION [None]
  - SOMNOLENCE [None]
  - WEIGHT INCREASED [None]
